FAERS Safety Report 6432756-0 (Version None)
Quarter: 2009Q4

REPORT INFORMATION
  Report Type: 
  Country: None (occurrence: None)
  Receive Date: 20091109
  Receipt Date: 20091103
  Transmission Date: 20100525
  Serious: Yes (Death)
  Sender: FDA-Public Use
  Company Number: US-CELGENEUS-163-21880-09101066

PATIENT
  Sex: Male

DRUGS (2)
  1. REVLIMID [Suspect]
     Indication: MYELODYSPLASTIC SYNDROME
     Route: 048
     Dates: start: 20090306, end: 20090101
  2. REVLIMID [Suspect]
     Route: 048
     Dates: start: 20081008

REACTIONS (3)
  - ADULT T-CELL LYMPHOMA/LEUKAEMIA [None]
  - HEPATIC CIRRHOSIS [None]
  - MYELODYSPLASTIC SYNDROME TRANSFORMATION [None]
